FAERS Safety Report 10741798 (Version 1)
Quarter: 2015Q1

REPORT INFORMATION
  Report Type: Spontaneous
  Country: US (occurrence: US)
  Receive Date: 20150127
  Receipt Date: 20150127
  Transmission Date: 20150721
  Serious: No
  Sender: FDA-Public Use
  Company Number: US-ASTRAZENECA-2014SE58207

PATIENT
  Age: 67 Year
  Sex: Female
  Weight: 85.3 kg

DRUGS (42)
  1. BYDUREON [Suspect]
     Active Substance: EXENATIDE
     Indication: TYPE 2 DIABETES MELLITUS
     Route: 065
     Dates: start: 20140409
  2. CHLORINE [Concomitant]
     Active Substance: CHLORINE
  3. MANGANESE [Concomitant]
     Active Substance: MANGANESE\MANGANESE CHLORIDE
  4. NICKEL [Concomitant]
     Active Substance: NICKEL
  5. VITAMIN K [Concomitant]
     Active Substance: PHYTONADIONE
  6. VANADIUM. [Concomitant]
     Active Substance: VANADIUM
  7. INSULIN GLARGINE [Concomitant]
     Active Substance: INSULIN GLARGINE
  8. ERGOCALCIFEROL. [Concomitant]
     Active Substance: ERGOCALCIFEROL
  9. CYANOCOBALAMIN. [Concomitant]
     Active Substance: CYANOCOBALAMIN
  10. SELENIUM [Concomitant]
     Active Substance: SELENIUM
  11. TOCOPHEROL [Concomitant]
     Active Substance: TOCOPHEROL
  12. ZINC [Concomitant]
     Active Substance: ZINC\ZINC CHLORIDE
  13. LATANOPROST. [Concomitant]
     Active Substance: LATANOPROST
  14. ACETYLSALICYLIC ACID [Concomitant]
     Active Substance: ASPIRIN
  15. COPPER [Concomitant]
     Active Substance: COPPER
  16. PHOSPHORUS [Concomitant]
     Active Substance: PHOSPHORUS
  17. AMITRIPTYLINE [Concomitant]
     Active Substance: AMITRIPTYLINE
  18. CHROMIUM [Concomitant]
     Active Substance: CHROMIC CHLORIDE\CHROMIUM
  19. MAGNESIUM [Concomitant]
     Active Substance: MAGNESIUM
  20. PYRIDOXINE HYDROCHLORIDE. [Concomitant]
     Active Substance: PYRIDOXINE HYDROCHLORIDE
  21. RIBOFLAVIN [Concomitant]
     Active Substance: RIBOFLAVIN
  22. ATORVASTATIN CALCIUM. [Concomitant]
     Active Substance: ATORVASTATIN CALCIUM
  23. CALCIUM, COLECALCIFEROL [Concomitant]
     Active Substance: CALCIUM\CHOLECALCIFEROL
  24. ASCORBIC ACID. [Concomitant]
     Active Substance: ASCORBIC ACID
  25. CALCIUM PANTOTHENATE [Concomitant]
     Active Substance: CALCIUM PANTOTHENATE
  26. IODINE [Concomitant]
     Active Substance: IODINE
  27. RETINOL [Concomitant]
     Active Substance: RETINOL
  28. THIAMINE HYDROCHLORIDE. [Concomitant]
     Active Substance: THIAMINE HYDROCHLORIDE
  29. FOLIC ACID. [Concomitant]
     Active Substance: FOLIC ACID
  30. IRON [Concomitant]
     Active Substance: IRON
  31. NICOTINAMIDE [Concomitant]
     Active Substance: NIACINAMIDE
  32. CITALOPRAM [Concomitant]
     Active Substance: CITALOPRAM HYDROBROMIDE
  33. INDAPAMIDE. [Concomitant]
     Active Substance: INDAPAMIDE
  34. FISH OIL, TOCOPHEROL [Concomitant]
  35. AMLODIPINE [Concomitant]
     Active Substance: AMLODIPINE BESYLATE
  36. SILICON DIOXIDE [Concomitant]
     Active Substance: SILICON DIOXIDE
  37. RANITIDINE HYDROCHLORIDE. [Concomitant]
     Active Substance: RANITIDINE HYDROCHLORIDE
  38. METFORMIN HCL (NON AZ PRODUCT) [Suspect]
     Active Substance: METFORMIN HYDROCHLORIDE
     Indication: PRODUCT USED FOR UNKNOWN INDICATION
     Route: 065
  39. BIOTIN [Concomitant]
     Active Substance: BIOTIN
  40. MOLYBDENUM [Concomitant]
     Active Substance: MOLYBDENUM
  41. POTASSIUM [Concomitant]
     Active Substance: POTASSIUM
  42. LOSARTAN POTASSIUM. [Concomitant]
     Active Substance: LOSARTAN POTASSIUM

REACTIONS (8)
  - Dyspepsia [Unknown]
  - Cough [Unknown]
  - Eye infection [Unknown]
  - Nausea [Recovered/Resolved]
  - Injection site mass [Unknown]
  - Decreased appetite [Unknown]
  - Diarrhoea [Unknown]
  - Ear infection [Unknown]

NARRATIVE: CASE EVENT DATE: 201404
